FAERS Safety Report 4880860-0 (Version None)
Quarter: 2005Q4

REPORT INFORMATION
  Report Type: 
  Country: None (occurrence: None)
  Receive Date: 20051223
  Receipt Date: 20051114
  Transmission Date: 20060501
  Serious: No
  Sender: FDA-Public Use
  Company Number: 05P-163-0317156-00

PATIENT
  Age: 44 Year
  Sex: Female
  Weight: 83.4619 kg

DRUGS (1)
  1. HUMIRA [Suspect]
     Indication: RHEUMATOID ARTHRITIS
     Dosage: 40 MG, 1 IN 2 WK, SUBCUTANEOUS
     Route: 058
     Dates: start: 20030101, end: 20051025

REACTIONS (5)
  - FUNGAL SKIN INFECTION [None]
  - FURUNCLE [None]
  - SKIN BACTERIAL INFECTION [None]
  - THERAPEUTIC RESPONSE UNEXPECTED [None]
  - VULVOVAGINAL MYCOTIC INFECTION [None]
